FAERS Safety Report 4501019-2 (Version None)
Quarter: 2004Q4

REPORT INFORMATION
  Report Type: 
  Country: None (occurrence: None)
  Receive Date: 20041115
  Receipt Date: 20041108
  Transmission Date: 20050328
  Serious: Yes (Hospitalization)
  Sender: FDA-Public Use
  Company Number: DE-GLAXOSMITHKLINE-D0045166A

PATIENT
  Age: 39 Year
  Sex: Female
  Weight: 68.8 kg

DRUGS (3)
  1. SEROXAT [Suspect]
     Indication: DEPRESSION
     Dosage: 10MG PER DAY
     Route: 048
     Dates: start: 20040515, end: 20040622
  2. CIPRALEX [Suspect]
     Indication: DEPRESSION
     Dosage: 10MG PER DAY
     Route: 048
     Dates: start: 20040622
  3. SAROTEN RETARD [Concomitant]
     Dosage: 25MG PER DAY
     Route: 065
     Dates: start: 20040623

REACTIONS (13)
  - ABDOMINAL PAIN UPPER [None]
  - CIRCULATORY COLLAPSE [None]
  - COLD SWEAT [None]
  - CYANOSIS [None]
  - DEPRESSION [None]
  - DIZZINESS [None]
  - DRUG INTERACTION [None]
  - HEART RATE INCREASED [None]
  - ILL-DEFINED DISORDER [None]
  - NAUSEA [None]
  - PALLOR [None]
  - POOR PERIPHERAL CIRCULATION [None]
  - PULSE ABNORMAL [None]
